FAERS Safety Report 18907116 (Version 1)
Quarter: 2021Q1

REPORT INFORMATION
  Report Type: Spontaneous
  Country: CH (occurrence: CH)
  Receive Date: 20210218
  Receipt Date: 20210218
  Transmission Date: 20210420
  Serious: Yes (Other)
  Sender: FDA-Public Use
  Company Number: CH-TEVA-2021-CH-1879390

PATIENT
  Sex: Male

DRUGS (4)
  1. PACLITAXEL. [Suspect]
     Active Substance: PACLITAXEL
     Indication: SQUAMOUS CELL CARCINOMA OF THE ORAL CAVITY
     Dosage: COMPLETED 5 CYCLES
     Route: 065
  2. CETUXIMAB. [Suspect]
     Active Substance: CETUXIMAB
     Indication: SQUAMOUS CELL CARCINOMA OF THE ORAL CAVITY
     Route: 050
  3. CARBOPLATIN. [Suspect]
     Active Substance: CARBOPLATIN
     Indication: SQUAMOUS CELL CARCINOMA OF THE ORAL CAVITY
     Dosage: AUC 4 (COMPLETED 5 CYCLES)
     Route: 065
  4. PANITUMUMAB [Suspect]
     Active Substance: PANITUMUMAB
     Indication: SQUAMOUS CELL CARCINOMA OF THE ORAL CAVITY
     Dosage: EVERY 2 WEEKS
     Route: 065

REACTIONS (8)
  - Off label use [Recovering/Resolving]
  - Anaphylactic shock [Recovering/Resolving]
  - Thrombocytopenia [Unknown]
  - Neurotoxicity [Unknown]
  - Neutropenia [Unknown]
  - Dry mouth [Recovering/Resolving]
  - Skin toxicity [Recovering/Resolving]
  - Infusion related hypersensitivity reaction [Recovering/Resolving]
